FAERS Safety Report 7363157-9 (Version None)
Quarter: 2011Q1

REPORT INFORMATION
  Report Type: 
  Country: None (occurrence: None)
  Receive Date: 20110321
  Receipt Date: 20080701
  Transmission Date: 20110831
  Serious: Yes (Death, Other)
  Sender: FDA-Public Use
  Company Number: US-BAYER-200827159NA

PATIENT
  Sex: Male
  Weight: 77 kg

DRUGS (14)
  1. METOPROLOL [Concomitant]
     Dosage: 100 MG, BID
  2. PREVACID [Concomitant]
  3. TRASYLOL [Suspect]
     Indication: AORTIC DISSECTION
  4. INSULIN [Concomitant]
     Dosage: 60 U, HS
  5. ANDRODERM [Concomitant]
     Dosage: 2.5 MG; TWO PATCHES PER DAY
  6. ZOCOR [Concomitant]
     Dosage: 80 MG, QD
  7. TRASYLOL [Suspect]
     Indication: CORONARY ARTERY BYPASS
  8. PREDNISONE [Concomitant]
     Dosage: 7.5 MG, QD
  9. TRASYLOL [Suspect]
     Indication: CARDIAC OPERATION
     Route: 042
     Dates: start: 20050817
  10. CONTRAST MEDIA [Concomitant]
     Indication: CATHETERISATION CARDIAC
     Dosage: UNK
     Dates: start: 20050817
  11. DIGOXIN [Concomitant]
     Dosage: 0.125 MG, QD
  12. INSULIN [Concomitant]
     Dosage: 50 U, OM
  13. FOSAMAX [Concomitant]
  14. PROGRAF [Concomitant]

REACTIONS (3)
  - DEATH [None]
  - INJURY [None]
  - RENAL FAILURE [None]
